FAERS Safety Report 6220875-3 (Version None)
Quarter: 2009Q2

REPORT INFORMATION
  Report Type: 
  Country: None (occurrence: None)
  Receive Date: 20090604
  Receipt Date: 20090519
  Transmission Date: 20091009
  Serious: Yes (Other)
  Sender: FDA-Public Use
  Company Number: B0576215A

PATIENT
  Sex: Female

DRUGS (2)
  1. LAPATINIB (FORMULATION UNKNOWN)  (GENERIC) (LAPATINIB) [Suspect]
     Indication: BREAST CANCER
     Dosage: 1000 MG ORAL
     Route: 048
  2. VINORELBINE TARTRATE [Suspect]
     Indication: BREAST CANCER
     Dosage: 25 MG/M2 INTRAVENOUS
     Route: 042

REACTIONS (2)
  - DRUG TOXICITY [None]
  - NEUTROPENIA [None]
